FAERS Safety Report 19423033 (Version 1)
Quarter: 2021Q2

REPORT INFORMATION
  Report Type: Spontaneous
  Country: DE (occurrence: DE)
  Receive Date: 20210616
  Receipt Date: 20210616
  Transmission Date: 20210717
  Serious: Yes (Hospitalization, Disabling, Other)
  Sender: FDA-Public Use
  Company Number: DE-TEVA-2021-DE-1921281

PATIENT
  Age: 76 Year
  Sex: Female
  Weight: 119 kg

DRUGS (4)
  1. ARSENTRIOXID [Suspect]
     Active Substance: ARSENIC TRIOXIDE
     Indication: ACUTE PROMYELOCYTIC LEUKAEMIA
     Dosage: 0.15MG / KG
     Route: 042
     Dates: start: 20210214, end: 20210301
  2. ARSENTRIOXID [Suspect]
     Active Substance: ARSENIC TRIOXIDE
     Dosage: 0.15MG / KG
     Route: 042
     Dates: start: 20210201, end: 20210211
  3. ATRA [Concomitant]
     Active Substance: TRETINOIN
     Dosage: INDUCTION ATRA 45MG / M
     Dates: start: 20210201, end: 20210211
  4. ATRA [Concomitant]
     Active Substance: TRETINOIN
     Dosage: INDUCTION ATRA 45MG / M
     Dates: start: 20210214, end: 20210301

REACTIONS (1)
  - Axonal and demyelinating polyneuropathy [Not Recovered/Not Resolved]

NARRATIVE: CASE EVENT DATE: 20210317
